FAERS Safety Report 9267426 (Version 10)
Quarter: 2015Q2

REPORT INFORMATION
  Report Type: Report from Study
  Country: US (occurrence: US)
  Receive Date: 20130502
  Receipt Date: 20150505
  Transmission Date: 20150821
  Serious: Yes (Hospitalization)
  Sender: FDA-Public Use
  Company Number: US-ACTELION-A-NJ2013-82581

PATIENT
  Age: 59 Year
  Sex: Female

DRUGS (15)
  1. TRACLEER [Suspect]
     Active Substance: BOSENTAN\BOSENTAN MONOHYDRATE
     Indication: PULMONARY ARTERIAL HYPERTENSION
     Dosage: 125 MG, BID
     Route: 048
     Dates: start: 20020418
  2. SILDENAFIL. [Concomitant]
     Active Substance: SILDENAFIL
     Dosage: 20 MG, TID
     Dates: start: 2011
  3. METFORMIN [Concomitant]
     Active Substance: METFORMIN HYDROCHLORIDE
     Indication: ESSENTIAL HYPERTENSION
     Dosage: 500 MG, BID
     Dates: start: 2010
  4. TORSEMIDE. [Concomitant]
     Active Substance: TORSEMIDE
     Dosage: 20 MG, BID
     Dates: start: 2002
  5. DEMADEX [Suspect]
     Active Substance: TORSEMIDE
     Indication: PRODUCT USED FOR UNKNOWN INDICATION
     Dosage: 20 MG, BID
     Route: 065
     Dates: start: 2002
  6. CARDIZEM [Concomitant]
     Active Substance: DILTIAZEM HYDROCHLORIDE
     Dosage: 60 MG, BID
     Dates: start: 201301
  7. VITAMIN B [Concomitant]
     Active Substance: VITAMIN B
     Dosage: 1.25 MG, Q1WEEK
     Dates: start: 2014
  8. CODEINE [Concomitant]
     Active Substance: CODEINE
     Dosage: UNK, PRN
     Route: 048
     Dates: start: 201309
  9. SPIRONOLACTONE. [Concomitant]
     Active Substance: SPIRONOLACTONE
     Dosage: 25 MG, QD
     Dates: start: 200201
  10. NOVOLOG [Concomitant]
     Active Substance: INSULIN ASPART
     Dosage: 6 U, PRN
     Dates: start: 2013
  11. PREDNISONE. [Suspect]
     Active Substance: PREDNISONE
     Indication: PRODUCT USED FOR UNKNOWN INDICATION
     Dosage: 10 MG, QD
     Route: 065
     Dates: start: 200309
  12. CLINDAMYCIN [Suspect]
     Active Substance: CLINDAMYCIN\CLINDAMYCIN PHOSPHATE
     Indication: PRODUCT USED FOR UNKNOWN INDICATION
     Route: 065
  13. SILDENAFIL. [Concomitant]
     Active Substance: SILDENAFIL
     Dosage: 25 MG, TID
     Dates: start: 2011
  14. FLEXERIL [Concomitant]
     Active Substance: CYCLOBENZAPRINE HYDROCHLORIDE
     Dosage: 10 MG, BID
     Dates: start: 1990
  15. LEVEMIR [Concomitant]
     Active Substance: INSULIN DETEMIR
     Dosage: 10 U, QD

REACTIONS (34)
  - Pulmonary oedema [Recovered/Resolved]
  - Cyanosis [Recovering/Resolving]
  - Fatigue [Not Recovered/Not Resolved]
  - Pneumonia [Unknown]
  - Pain in extremity [Recovering/Resolving]
  - Pulmonary arterial hypertension [Unknown]
  - Blood potassium decreased [Recovered/Resolved]
  - Atrial flutter [Not Recovered/Not Resolved]
  - Chest discomfort [Recovering/Resolving]
  - Nasopharyngitis [Recovering/Resolving]
  - Poor peripheral circulation [Recovering/Resolving]
  - Muscle spasms [Recovered/Resolved]
  - Dyspnoea [Unknown]
  - Sluggishness [Recovered/Resolved]
  - Catheter site pain [Recovered/Resolved]
  - Palpitations [Unknown]
  - Heart rate increased [Recovering/Resolving]
  - Agoraphobia [Not Recovered/Not Resolved]
  - Heart rate abnormal [Recovered/Resolved]
  - Lung disorder [Not Recovered/Not Resolved]
  - Blood glucose increased [Not Recovered/Not Resolved]
  - Pulmonary arterial pressure increased [Unknown]
  - Glycosylated haemoglobin increased [Not Recovered/Not Resolved]
  - Eye allergy [Not Recovered/Not Resolved]
  - Swelling [Not Recovered/Not Resolved]
  - Dermatitis diaper [Recovered/Resolved]
  - Abnormal loss of weight [Not Recovered/Not Resolved]
  - Cellulitis [Recovering/Resolving]
  - Weight increased [Not Recovered/Not Resolved]
  - Cough [Unknown]
  - Malaise [Not Recovered/Not Resolved]
  - Back pain [Not Recovered/Not Resolved]
  - Oedema peripheral [Recovering/Resolving]
  - Vulval disorder [Recovered/Resolved]

NARRATIVE: CASE EVENT DATE: 2002
